FAERS Safety Report 12562907 (Version 3)
Quarter: 2016Q3

REPORT INFORMATION
  Report Type: Spontaneous
  Country: FR (occurrence: FR)
  Receive Date: 20160715
  Receipt Date: 20160721
  Transmission Date: 20161109
  Serious: Yes (Life-Threatening, Hospitalization, Other)
  Sender: FDA-Public Use
  Company Number: FR-SA-2016SA128681

PATIENT
  Age: 43 Year
  Sex: Male

DRUGS (2)
  1. AMOXICILLIN (SALT NOT SPECIFIED) [Suspect]
     Active Substance: AMOXICILLIN
     Indication: ARTHRITIS INFECTIVE
     Route: 065
     Dates: start: 2014
  2. RIFAMPICIN [Suspect]
     Active Substance: RIFAMPIN
     Indication: ARTHRITIS INFECTIVE
     Route: 065
     Dates: start: 2014

REACTIONS (13)
  - Dehydration [Recovering/Resolving]
  - Heart rate increased [Recovering/Resolving]
  - Hypokalaemia [Recovering/Resolving]
  - Hypotension [Recovering/Resolving]
  - Anti-transglutaminase antibody increased [Recovering/Resolving]
  - Diarrhoea [Recovered/Resolved]
  - Hypovolaemic shock [Recovering/Resolving]
  - Metabolic acidosis [Recovering/Resolving]
  - Weight decreased [Recovering/Resolving]
  - Body mass index decreased [Recovering/Resolving]
  - Intestinal villi atrophy [Recovering/Resolving]
  - Coeliac disease [Recovering/Resolving]
  - Condition aggravated [Recovering/Resolving]

NARRATIVE: CASE EVENT DATE: 2014
